FAERS Safety Report 9953696 (Version 2)
Quarter: 2014Q2

REPORT INFORMATION
  Report Type: Report from Study
  Country: US (occurrence: US)
  Receive Date: 20140304
  Receipt Date: 20140410
  Transmission Date: 20141212
  Serious: Yes (Hospitalization, Other)
  Sender: FDA-Public Use
  Company Number: PHEH2014US004193

PATIENT
  Age: 61 Year
  Sex: Female
  Weight: 79.37 kg

DRUGS (38)
  1. GILENYA [Suspect]
     Indication: MULTIPLE SCLEROSIS
     Dosage: 0.5 MG, QD
     Route: 048
     Dates: start: 20120504
  2. LOMOTIL /00034001/ [Suspect]
  3. ALBUTEROL SULFATE [Concomitant]
     Dates: start: 20120512
  4. ALPRAZOLAM [Concomitant]
  5. CHLOR-TRIMETON [Concomitant]
     Dosage: 4 MG, UNK
     Route: 048
  6. CYMBALTA [Concomitant]
     Dosage: 60 MG, QD
  7. FOSAMAX [Concomitant]
  8. IRON [Concomitant]
     Route: 048
  9. LACTAID [Concomitant]
     Dosage: 2 DF, QD
     Route: 048
  10. LASIX [Concomitant]
  11. LOMOTIL                            /00034001/ [Concomitant]
  12. LYRICA [Concomitant]
  13. MAGNESIUM GLUCONATE [Concomitant]
  14. METFORMIN [Concomitant]
     Dosage: 500 MG, UNK
     Route: 048
  15. OMEPRAZOLE [Concomitant]
     Route: 048
  16. OSCAL [Concomitant]
     Dosage: 500 MG, UNK
     Route: 048
  17. PROGESTERONE [Concomitant]
  18. SUDAFED [Concomitant]
  19. TESTOSTERONE [Concomitant]
  20. TRAZODONE [Concomitant]
     Dosage: 50 MG, UNK
     Route: 048
  21. VICODIN [Concomitant]
  22. VITAMIN D [Concomitant]
     Dosage: 1000 U, UNK
  23. VIVELLE-DOT [Concomitant]
  24. SERTRALINE [Concomitant]
     Dosage: 100 MG, UNK
     Route: 048
  25. PROZAC [Concomitant]
     Dosage: 20 MG, UNK
     Route: 048
  26. DIPHENOXYLATE/ATROPINE [Concomitant]
     Dosage: ATROPINE SULFATE,: 2.5MG DIPHENOXYLATE HYDROCHLORIDE: 0.25MG
     Route: 048
  27. HIDROCODONA/ACETAMINOFEN MALLINCKRODT [Concomitant]
     Dosage: HYDROCODONE BITARTRATE 7.5 MG, PARACETAMOL 3.25 MG
     Route: 048
  28. BACLOFEN [Concomitant]
     Dosage: 10 MG, UNK
     Route: 048
  29. PRAVASTATIN [Concomitant]
     Dosage: 40 MG, UNK
     Route: 048
  30. GABAPENTIN [Concomitant]
     Dosage: 600 MG, UNK
     Route: 048
  31. VOLTAREN ^CIBA-GEIGY^ [Concomitant]
  32. ALENDRONATE [Concomitant]
     Dosage: 70 MG, UNK
     Route: 048
  33. ADVAIR DISKUS [Concomitant]
  34. ASPIRIN [Concomitant]
     Dosage: 81 MG, UNK
  35. ACETAMINOPHEN [Concomitant]
     Dosage: 500 MG, UNK
     Route: 048
  36. ZEASORB-AF [Concomitant]
  37. PHOSPHATIDYL CHOLINE [Concomitant]
     Dosage: 100 MG, UNK
     Route: 048
  38. ATROVENT [Concomitant]

REACTIONS (20)
  - Dehydration [Unknown]
  - Loss of consciousness [Not Recovered/Not Resolved]
  - Diarrhoea [Unknown]
  - Acute respiratory failure [Not Recovered/Not Resolved]
  - Fall [Not Recovered/Not Resolved]
  - Ligament sprain [Unknown]
  - Mental status changes [Not Recovered/Not Resolved]
  - Osteoarthritis [Not Recovered/Not Resolved]
  - Stress [Unknown]
  - White blood cell count increased [Recovering/Resolving]
  - Memory impairment [Unknown]
  - Neurogenic bladder [Unknown]
  - Fatigue [Unknown]
  - Scab [Unknown]
  - Peripheral swelling [Unknown]
  - Miosis [Unknown]
  - Pupillary reflex impaired [Unknown]
  - Cataract [Unknown]
  - Unresponsive to stimuli [Unknown]
  - Anxiety [Unknown]
